FAERS Safety Report 15306926 (Version 1)
Quarter: 2018Q3

REPORT INFORMATION
  Report Type: Spontaneous
  Country: GB (occurrence: GB)
  Receive Date: 20180822
  Receipt Date: 20180822
  Transmission Date: 20181010
  Serious: Yes (Life-Threatening)
  Sender: FDA-Public Use
  Company Number: GB-LPDUSPRD-20181497

PATIENT
  Age: 87 Year
  Sex: Female
  Weight: 63.5 kg

DRUGS (6)
  1. METFORMIN HYDROCHLORIDE. [Concomitant]
     Active Substance: METFORMIN HYDROCHLORIDE
     Dosage: 1000 MG, 1 D
     Route: 065
  2. SITAGLIPTIN PHOSPHATE [Concomitant]
     Active Substance: SITAGLIPTIN PHOSPHATE
     Dosage: 100 MG
     Route: 065
  3. TRAMADOL. [Concomitant]
     Active Substance: TRAMADOL
     Dosage: 50 MG, AS REQUIRED
     Route: 065
  4. GABAPENTIN. [Concomitant]
     Active Substance: GABAPENTIN
     Dosage: 300 MG, 1 D
     Route: 065
  5. PARACETAMOL [Concomitant]
     Active Substance: ACETAMINOPHEN
     Dosage: 1 GM
     Route: 065
  6. FERINJECT [Suspect]
     Active Substance: FERRIC CARBOXYMALTOSE
     Dosage: 1 GM
     Route: 042
     Dates: start: 20180716, end: 20180716

REACTIONS (2)
  - Loss of consciousness [Unknown]
  - Axillary pain [Recovered/Resolved]

NARRATIVE: CASE EVENT DATE: 20180716
